FAERS Safety Report 4899388-7 (Version None)
Quarter: 2006Q1

REPORT INFORMATION
  Report Type: 
  Country: None (occurrence: None)
  Receive Date: 20060106
  Receipt Date: 20050912
  Transmission Date: 20060701
  Serious: No
  Sender: FDA-Public Use
  Company Number: 200511483BWH

PATIENT
  Age: 72 Year
  Sex: Male

DRUGS (4)
  1. LEVITRA [Suspect]
     Dosage: 10 MG, TOTAL DAILY, ORAL
     Route: 048
  2. QUININE [Concomitant]
  3. SLEEP AID [Concomitant]
  4. MEDICATION FOR SCIATIC NERVE PROBLEM [Concomitant]

REACTIONS (2)
  - EJACULATION FAILURE [None]
  - ERECTILE DYSFUNCTION [None]
